FAERS Safety Report 7941727-4 (Version None)
Quarter: 2011Q4

REPORT INFORMATION
  Report Type: 
  Country: None (occurrence: None)
  Receive Date: 20111128
  Receipt Date: 20110930
  Transmission Date: 20120403
  Serious: No
  Sender: FDA-Public Use
  Company Number: US-BAYER-2011-095007

PATIENT
  Age: 69 Year
  Sex: Female
  Weight: 97 kg

DRUGS (2)
  1. TOPROL-XL [Concomitant]
  2. ALEVE (CAPLET) [Suspect]
     Indication: BACK PAIN
     Dosage: 2 ALEVE
     Route: 048
     Dates: start: 20110929, end: 20110929

REACTIONS (1)
  - BACK PAIN [None]
